FAERS Safety Report 6770277-6 (Version None)
Quarter: 2010Q2

REPORT INFORMATION
  Report Type: 
  Country: None (occurrence: None)
  Receive Date: 20100610
  Receipt Date: 20100607
  Transmission Date: 20101027
  Serious: Yes (Life-Threatening, Hospitalization, Disabling, Other)
  Sender: FDA-Public Use
  Company Number: 2010SP031857

PATIENT
  Age: 70 Year
  Sex: Male
  Weight: 94.3482 kg

DRUGS (14)
  1. TEMODAR [Suspect]
     Indication: GLIOBLASTOMA
     Dosage: 420 MG; PO
     Route: 048
     Dates: start: 20090605, end: 20100405
  2. PF-04948568 [Suspect]
     Indication: GLIOBLASTOMA
     Dosage: ID
     Dates: start: 20090429
  3. SARGRAMOSTIM [Suspect]
     Indication: GLIOBLASTOMA
     Dosage: ID
     Dates: start: 20090429
  4. ACYCLOVIR [Suspect]
     Indication: DRUG USE FOR UNKNOWN INDICATION
     Dosage: 900 MG; QD; IV
     Route: 042
  5. ACIPHEX [Concomitant]
  6. AVODART [Concomitant]
  7. DEXAMETHASONE [Concomitant]
  8. ENALAPRIL MALEATE [Concomitant]
  9. TAMSULOSIN HYDROCHLORIDE [Concomitant]
  10. KEPPRA [Concomitant]
  11. PROZAC [Concomitant]
  12. VERPAMIL [Concomitant]
  13. ZOFRAN [Concomitant]
  14. LAMOTRIGINE [Concomitant]

REACTIONS (13)
  - CLONUS [None]
  - HAEMATOCRIT DECREASED [None]
  - HAEMOGLOBIN DECREASED [None]
  - HYDROCEPHALUS [None]
  - HYPERREFLEXIA [None]
  - HYPOTHYROIDISM [None]
  - MENTAL STATUS CHANGES [None]
  - MUSCLE TWITCHING [None]
  - MUSCULOSKELETAL STIFFNESS [None]
  - RENAL FAILURE ACUTE [None]
  - SEPSIS [None]
  - SYSTEMIC INFLAMMATORY RESPONSE SYNDROME [None]
  - UNRESPONSIVE TO STIMULI [None]
